FAERS Safety Report 5692994-1 (Version None)
Quarter: 2008Q2

REPORT INFORMATION
  Report Type: 
  Country: None (occurrence: None)
  Receive Date: 20080401
  Receipt Date: 20080401
  Transmission Date: 20081010
  Serious: Yes (Death)
  Sender: FDA-Public Use
  Company Number: None

PATIENT
  Age: 17 Year
  Sex: Male
  Weight: 56.6996 kg

DRUGS (1)
  1. SINGULAIR [Suspect]
     Indication: ASTHMA
     Dosage: 5.MG SID PO
     Route: 048
     Dates: start: 20000101, end: 20071001

REACTIONS (4)
  - BIPOLAR DISORDER [None]
  - COMPLETED SUICIDE [None]
  - GUN SHOT WOUND [None]
  - PERSONALITY CHANGE [None]
